FAERS Safety Report 7579293-8 (Version None)
Quarter: 2011Q2

REPORT INFORMATION
  Report Type: 
  Country: None (occurrence: None)
  Receive Date: 20110628
  Receipt Date: 20110617
  Transmission Date: 20111010
  Serious: Yes (Hospitalization)
  Sender: FDA-Public Use
  Company Number: DE-GENENTECH-317879

PATIENT
  Sex: Male

DRUGS (19)
  1. BLEOMYCIN SULFATE [Suspect]
     Indication: HODGKIN'S DISEASE
     Dosage: 10 MG/M2, UNK
     Route: 042
     Dates: start: 20110224
  2. DOXORUBICIN HCL [Suspect]
     Indication: HODGKIN'S DISEASE
     Dosage: 35 MG/M2, UNK
     Route: 042
     Dates: start: 20110224
  3. VINCRISTINE [Suspect]
     Dosage: 1.4 MG, UNK
     Route: 065
     Dates: start: 20110316
  4. PREDNISONE [Suspect]
     Dosage: 40 MG/M2, UNK
     Route: 065
     Dates: start: 20110316
  5. COTRIM [Concomitant]
     Indication: PRODUCT USED FOR UNKNOWN INDICATION
     Dosage: 1 DF, QOD
  6. CYCLOPHOSPHAMIDE [Suspect]
     Indication: HODGKIN'S DISEASE
     Dosage: 1250 MG/M2, UNK
     Route: 065
     Dates: start: 20110224
  7. CIPROFLOXACIN [Concomitant]
     Indication: PRODUCT USED FOR UNKNOWN INDICATION
     Dosage: 1 DF, QAM
     Dates: start: 20110303, end: 20110309
  8. FILGRASTIM [Suspect]
     Indication: PRODUCT USED FOR UNKNOWN INDICATION
     Dosage: 1 DF, QAM
     Route: 065
     Dates: start: 20110303, end: 20110309
  9. BLEOMYCIN SULFATE [Suspect]
     Dosage: 10 MG/M2, UNK
     Route: 042
     Dates: start: 20110316
  10. PREDNISONE [Suspect]
     Indication: HODGKIN'S DISEASE
     Dosage: 40 MG/M2, UNK
     Route: 065
     Dates: start: 20110224
  11. PANTOPRAZOLE [Concomitant]
     Indication: PRODUCT USED FOR UNKNOWN INDICATION
     Dosage: 1 DF, QAM
     Dates: start: 20110303, end: 20110309
  12. ACYCLOVIR [Concomitant]
     Indication: PRODUCT USED FOR UNKNOWN INDICATION
     Dosage: 1 DF, QAM
  13. DOXORUBICIN HCL [Suspect]
     Dosage: 35 MG/M2, UNK
     Route: 042
     Dates: start: 20110316
  14. VINCRISTINE [Suspect]
     Indication: HODGKIN'S DISEASE
     Dosage: 1.4 MG/M2, UNK
     Route: 065
     Dates: start: 20110224
  15. ETOPOSIDE [Suspect]
     Indication: HODGKIN'S DISEASE
     Dosage: 200 MG/M2, UNK
     Route: 065
     Dates: start: 20110224
  16. CYCLOPHOSPHAMIDE [Suspect]
     Dosage: 1250 MG/M2, UNK
     Route: 065
     Dates: start: 20110316
  17. RITUXIMAB [Suspect]
     Indication: HODGKIN'S DISEASE
     Dosage: 375 MG/M2, UNK
     Route: 042
     Dates: start: 20110316
  18. PROCARBAZINE HYDROCHLORIDE [Suspect]
     Indication: HODGKIN'S DISEASE
     Dosage: 100 MG/M2, UNK
     Route: 042
     Dates: start: 20110224
  19. PROCARBAZINE HYDROCHLORIDE [Suspect]
     Dosage: 100 MG/M2, UNK
     Route: 042
     Dates: start: 20110316

REACTIONS (7)
  - SEPSIS [None]
  - ARTHRALGIA [None]
  - BONE PAIN [None]
  - DEVICE RELATED INFECTION [None]
  - C-REACTIVE PROTEIN INCREASED [None]
  - PYREXIA [None]
  - C-REACTIVE PROTEIN DECREASED [None]
